FAERS Safety Report 6932424-2 (Version None)
Quarter: 2010Q3

REPORT INFORMATION
  Report Type: 
  Country: None (occurrence: None)
  Receive Date: 20100819
  Receipt Date: 20100809
  Transmission Date: 20110219
  Serious: Yes (Other)
  Sender: FDA-Public Use
  Company Number: US-PFIZER INC-2010100142

PATIENT
  Sex: Male
  Weight: 83.9 kg

DRUGS (9)
  1. LIPITOR [Suspect]
     Indication: BLOOD CHOLESTEROL INCREASED
     Dosage: 20 MG, 1X/DAY
     Route: 048
  2. OXYCONTIN [Concomitant]
     Indication: PAIN MANAGEMENT
     Dosage: 40 MG, 3X/DAY
     Route: 048
     Dates: start: 19940101
  3. OXYCODONE AND ACETAMINOPHEN [Concomitant]
     Indication: PAIN MANAGEMENT
     Dosage: 10/325
     Route: 048
     Dates: start: 19920101
  4. ACETYLSALICYLIC ACID [Concomitant]
     Dosage: 325 MG, 1X/DAY
     Route: 048
  5. LISINOPRIL [Concomitant]
     Dosage: 10 MG, 1X/DAY
     Route: 048
  6. AMLODIPINE [Concomitant]
     Dosage: 10 MG, 2X/DAY
     Route: 048
  7. POTASSIUM [Concomitant]
     Dosage: 10 MEQ, 1X/DAY
     Route: 048
  8. FUROSEMIDE [Concomitant]
     Dosage: 40MG, ONE AND A HALF TABLETS DAILY
     Route: 048
  9. ISOSORBIDE MONONITRATE [Concomitant]
     Indication: DYSPNOEA
     Dosage: 30 MG, 1X/DAY
     Dates: start: 20100730

REACTIONS (7)
  - BLOOD CALCIUM DECREASED [None]
  - BLOOD CREATININE INCREASED [None]
  - BLOOD SODIUM DECREASED [None]
  - CARDIAC FAILURE CONGESTIVE [None]
  - INSOMNIA [None]
  - MUSCLE SPASMS [None]
  - MYALGIA [None]
